FAERS Safety Report 7441731-9 (Version None)
Quarter: 2011Q2

REPORT INFORMATION
  Report Type: 
  Country: None (occurrence: None)
  Receive Date: 20110419
  Receipt Date: 20110405
  Transmission Date: 20111010
  Serious: Yes (Hospitalization)
  Sender: FDA-Public Use
  Company Number: DSA_45209_2011

PATIENT
  Sex: Female

DRUGS (4)
  1. NUVIGIL [Suspect]
     Indication: HYPERSOMNIA
     Dosage: (DF ORAL)
     Route: 048
     Dates: start: 20100101, end: 20101201
  2. CYMBALTA [Suspect]
     Indication: PREMENSTRUAL SYNDROME
     Dosage: (2 TABLETS DAILY ORAL)
     Route: 048
  3. BUPROPION HYDROCHLORIDE [Suspect]
     Indication: POST-TRAUMATIC STRESS DISORDER
     Dosage: (1 TABLET TWICE PER DAY ORAL)
     Route: 048
  4. RITALIN [Concomitant]

REACTIONS (9)
  - DRUG INTERACTION [None]
  - CONVULSION [None]
  - HYPERSENSITIVITY [None]
  - SWELLING FACE [None]
  - LIP SWELLING [None]
  - DYSKINESIA [None]
  - SWOLLEN TONGUE [None]
  - DYSPNOEA [None]
  - TREMOR [None]
